FAERS Safety Report 17688562 (Version 1)
Quarter: 2020Q2

REPORT INFORMATION
  Report Type: Spontaneous
  Country: US (occurrence: US)
  Receive Date: 20200421
  Receipt Date: 20200421
  Transmission Date: 20200714
  Serious: Yes (Other)
  Sender: FDA-Public Use
  Company Number: NVSC2020US105185

PATIENT
  Age: 15 Year
  Sex: Female

DRUGS (3)
  1. ALBUTEROL. [Concomitant]
     Active Substance: ALBUTEROL
     Indication: ASTHMA
     Dosage: UNK
     Route: 065
  2. MINOCYCLINE [Suspect]
     Active Substance: MINOCYCLINE HYDROCHLORIDE
     Indication: ACNE
     Dosage: UNK
     Route: 048
  3. SERTRALINE [Concomitant]
     Active Substance: SERTRALINE HYDROCHLORIDE
     Indication: DEPRESSION
     Dosage: UNK
     Route: 065

REACTIONS (7)
  - Hyperthyroidism [Recovered/Resolved]
  - Tremor [Recovered/Resolved]
  - Hyperreflexia [Recovered/Resolved]
  - Thyroiditis [Recovered/Resolved]
  - Affect lability [Recovered/Resolved]
  - Hypertension [Recovered/Resolved]
  - Goitre [Recovered/Resolved]
